FAERS Safety Report 14333229 (Version 2)
Quarter: 2018Q1

REPORT INFORMATION
  Report Type: Spontaneous
  Country: FR (occurrence: FR)
  Receive Date: 20171228
  Receipt Date: 20180112
  Transmission Date: 20180509
  Serious: No
  Sender: FDA-Public Use
  Company Number: FR-TOLMAR, INC.-2017FR017536

PATIENT
  Age: 62 Year
  Sex: Male

DRUGS (1)
  1. ELIGARD [Suspect]
     Active Substance: LEUPROLIDE ACETATE
     Indication: PRODUCT USED FOR UNKNOWN INDICATION
     Dosage: 45 MG, EVERY 6 MONTHS
     Route: 065
     Dates: start: 2013

REACTIONS (1)
  - Blood testosterone increased [Unknown]

NARRATIVE: CASE EVENT DATE: 201707
